FAERS Safety Report 6394206-2 (Version None)
Quarter: 2009Q4

REPORT INFORMATION
  Report Type: 
  Country: None (occurrence: None)
  Receive Date: 20091008
  Receipt Date: 20091002
  Transmission Date: 20100525
  Serious: Yes (Hospitalization)
  Sender: FDA-Public Use
  Company Number: US-GENENTECH-291733

PATIENT
  Sex: Male

DRUGS (11)
  1. BEVACIZUMAB [Suspect]
     Indication: HEAD AND NECK CANCER
     Dosage: 15 MG/KG, Q21D
     Route: 042
     Dates: start: 20090805
  2. DOCETAXEL [Suspect]
     Indication: HEAD AND NECK CANCER
     Dosage: 75 MG/M2, Q21D
     Route: 042
     Dates: start: 20090805
  3. CISPLATIN [Suspect]
     Indication: HEAD AND NECK CANCER
     Dosage: 75 MG/M2, Q21D
     Route: 042
     Dates: start: 20090805
  4. OMEPRAZOLE [Concomitant]
     Indication: DRUG USE FOR UNKNOWN INDICATION
     Dosage: 20 MG, BID
  5. CHONDROITIN SULFATE/GLUCOSAMINE [Concomitant]
     Indication: DRUG USE FOR UNKNOWN INDICATION
     Dosage: 2 TABLET, BID
  6. ATENOLOL [Concomitant]
     Indication: DRUG USE FOR UNKNOWN INDICATION
     Dosage: 100 MG, QD
  7. FENOFIBRATE [Concomitant]
     Indication: DRUG USE FOR UNKNOWN INDICATION
     Dosage: 145 MG, QD
  8. ENALAPRIL MALEATE [Concomitant]
     Indication: DRUG USE FOR UNKNOWN INDICATION
     Dosage: 20 MG, QD
  9. ASPIRIN [Concomitant]
     Indication: DRUG USE FOR UNKNOWN INDICATION
     Dosage: 81 MG, QD
  10. SIMVASTATIN [Concomitant]
     Indication: DRUG USE FOR UNKNOWN INDICATION
     Dosage: 80 MG, QHS
  11. OXYCODONE [Concomitant]
     Indication: PAIN
     Dosage: 5 MG, PRN

REACTIONS (1)
  - RENAL FAILURE [None]
